FAERS Safety Report 4882577-5 (Version None)
Quarter: 2005Q4

REPORT INFORMATION
  Report Type: 
  Country: None (occurrence: None)
  Receive Date: 20051201
  Receipt Date: 20050930
  Transmission Date: 20060501
  Serious: No
  Sender: FDA-Public Use
  Company Number: 2005PV002711

PATIENT
  Age: 52 Year
  Sex: Male
  Weight: 83.4619 kg

DRUGS (5)
  1. BYETTA [Suspect]
     Indication: DIABETES MELLITUS
     Dosage: 5 MCG;BID;SC
     Route: 058
     Dates: start: 20050920
  2. LANTUS [Concomitant]
  3. GLUCOPHAGE [Concomitant]
  4. GLIPIZIDE ER [Concomitant]
  5. PRANDIN [Concomitant]

REACTIONS (4)
  - ANOREXIA [None]
  - ASTHENIA [None]
  - NAUSEA [None]
  - WEIGHT DECREASED [None]
